FAERS Safety Report 12566357 (Version 1)
Quarter: 2016Q3

REPORT INFORMATION
  Report Type: Report from Study
  Country: US (occurrence: US)
  Receive Date: 20160718
  Receipt Date: 20160718
  Transmission Date: 20161109
  Serious: Yes (Other)
  Sender: FDA-Public Use
  Company Number: US-BAYER-2016-129685

PATIENT
  Age: 61 Year
  Sex: Female

DRUGS (1)
  1. STIVARGA [Suspect]
     Active Substance: REGORAFENIB
     Indication: COLORECTAL CANCER
     Dosage: 160 MG, QD
     Route: 048
     Dates: start: 20160627, end: 20160630

REACTIONS (11)
  - Feeding disorder [None]
  - Headache [None]
  - Hypoaesthesia [None]
  - Pain of skin [None]
  - Neuropathy peripheral [None]
  - Activities of daily living impaired [None]
  - Decreased appetite [None]
  - Asthenia [None]
  - Nausea [None]
  - Headache [Not Recovered/Not Resolved]
  - Vomiting [None]

NARRATIVE: CASE EVENT DATE: 201606
